FAERS Safety Report 9205047 (Version 3)
Quarter: 2013Q4

REPORT INFORMATION
  Report Type: Spontaneous
  Country: US (occurrence: US)
  Receive Date: 20130402
  Receipt Date: 20131108
  Transmission Date: 20140711
  Serious: Yes (Hospitalization)
  Sender: FDA-Public Use
  Company Number: US-B.I. PHARMACEUTICALS,INC./RIDGEFIELD-2013-BI-08752BP

PATIENT
  Age: 74 Year
  Sex: Male
  Weight: 78.01 kg

DRUGS (12)
  1. PRADAXA [Suspect]
     Indication: ATRIAL FIBRILLATION
     Dosage: 300 MG
     Route: 048
     Dates: start: 20110513, end: 20111217
  2. COREG [Concomitant]
     Indication: CARDIAC DISORDER
     Dosage: 25 MG
     Route: 048
  3. ONGZIDE [Concomitant]
     Indication: DIABETES MELLITUS
     Dosage: 2.5 MG
  4. PRAVACHOL [Concomitant]
     Indication: HYPERCHOLESTEROLAEMIA
     Dosage: 40 MG
  5. FLOMAX [Concomitant]
     Indication: BENIGN PROSTATIC HYPERPLASIA
     Dosage: 0.4 MG
  6. TEKTURNA [Concomitant]
     Dosage: 300 MG
  7. FOSINOPRIL [Concomitant]
     Dosage: 40 MG
  8. AVODART [Concomitant]
     Dosage: 0.5 MG
     Route: 048
  9. MULTIVITAMIN [Concomitant]
     Route: 048
  10. METFORMIN [Concomitant]
     Dosage: 1000 MG
     Route: 048
  11. AMIODARONE [Concomitant]
     Dosage: 400 MG
     Route: 048
  12. LASIX [Concomitant]
     Indication: OEDEMA PERIPHERAL
     Route: 048

REACTIONS (4)
  - Upper gastrointestinal haemorrhage [Recovered/Resolved]
  - Haemorrhagic anaemia [Unknown]
  - Syncope [Unknown]
  - Haemoptysis [Unknown]
